FAERS Safety Report 19881849 (Version 1)
Quarter: 2021Q3

REPORT INFORMATION
  Report Type: Spontaneous
  Country: US (occurrence: US)
  Receive Date: 20210924
  Receipt Date: 20210924
  Transmission Date: 20211014
  Serious: Yes (Other)
  Sender: FDA-Public Use
  Company Number: US-INCYTE CORPORATION-2021IN008592

PATIENT

DRUGS (2)
  1. JAKAFI [Suspect]
     Active Substance: RUXOLITINIB
     Dosage: 20 MILLIGRAM, BID
     Route: 048
     Dates: start: 202109
  2. JAKAFI [Suspect]
     Active Substance: RUXOLITINIB
     Indication: MYELOFIBROSIS
     Dosage: UNK
     Route: 065
     Dates: start: 202003

REACTIONS (15)
  - Hepatic cirrhosis [Unknown]
  - Renal disorder [Unknown]
  - Hypophagia [Unknown]
  - Fatigue [Unknown]
  - Constipation [Recovering/Resolving]
  - Intra-abdominal fluid collection [Unknown]
  - Fluid retention [Unknown]
  - Weight decreased [Unknown]
  - Diarrhoea [Unknown]
  - Flatulence [Unknown]
  - Dizziness [Unknown]
  - Splenomegaly [Unknown]
  - Abdominal distension [Unknown]
  - Colitis [Recovering/Resolving]
  - Early satiety [Unknown]
